FAERS Safety Report 18116259 (Version 1)
Quarter: 2020Q3

REPORT INFORMATION
  Report Type: Spontaneous
  Country: SE (occurrence: SE)
  Receive Date: 20200805
  Receipt Date: 20200805
  Transmission Date: 20201103
  Serious: Yes (Hospitalization, Disabling, Other)
  Sender: FDA-Public Use
  Company Number: NVSC2020SE217040

PATIENT
  Age: 56 Year
  Sex: Female

DRUGS (3)
  1. BRICANYL [Concomitant]
     Active Substance: TERBUTALINE SULFATE
     Indication: PRODUCT USED FOR UNKNOWN INDICATION
     Dosage: 1 OT (AS NECESSARY)
     Route: 065
  2. GABAPENTIN. [Suspect]
     Active Substance: GABAPENTIN
     Indication: OCCIPITAL NEURALGIA
     Dosage: UNK (FR?N 300 MG TILL 3000MG OM DAGEN.)
     Route: 065
     Dates: start: 20171025, end: 201805
  3. PULMICORT TURBUHALER [Concomitant]
     Active Substance: BUDESONIDE
     Indication: PRODUCT USED FOR UNKNOWN INDICATION
     Dosage: 1 OT (AS NECESSARY)
     Route: 065

REACTIONS (9)
  - Female reproductive tract disorder [Recovered/Resolved]
  - Oedema [Recovered/Resolved]
  - Micturition disorder [Recovering/Resolving]
  - Vulvovaginal pain [Recovering/Resolving]
  - Hypotonia [Recovering/Resolving]
  - Abdominal pain [Recovering/Resolving]
  - Micturition disorder [Recovering/Resolving]
  - Skin disorder [Recovering/Resolving]
  - Back pain [Recovering/Resolving]

NARRATIVE: CASE EVENT DATE: 2018
